FAERS Safety Report 21666035 (Version 1)
Quarter: 2022Q4

REPORT INFORMATION
  Report Type: Spontaneous
  Country: GB (occurrence: GB)
  Receive Date: 20221201
  Receipt Date: 20221201
  Transmission Date: 20230113
  Serious: Yes (Disabling, Other)
  Sender: FDA-Public Use
  Company Number: GB-MHRA-MED-202211210941543990-FPRTG

PATIENT

DRUGS (1)
  1. GRAZAX [Suspect]
     Active Substance: PHLEUM PRATENSE POLLEN
     Indication: Adverse drug reaction
     Dosage: 1 TAB EACH MORNING
     Route: 060
     Dates: start: 20221116

REACTIONS (3)
  - Rhinorrhoea [Not Recovered/Not Resolved]
  - Seasonal allergy [Unknown]
  - Fatigue [Unknown]

NARRATIVE: CASE EVENT DATE: 20221118
